FAERS Safety Report 5200253-6 (Version None)
Quarter: 2007Q1

REPORT INFORMATION
  Report Type: 
  Country: None (occurrence: None)
  Receive Date: 20070105
  Receipt Date: 20061227
  Transmission Date: 20070707
  Serious: Yes (Hospitalization, Other)
  Sender: FDA-Public Use
  Company Number: US-PFIZER INC-2006123408

PATIENT
  Age: 3 Year
  Sex: Female
  Weight: 10.9 kg

DRUGS (1)
  1. LYRICA [Suspect]
     Indication: CONVULSION

REACTIONS (2)
  - ACCIDENTAL OVERDOSE [None]
  - CONVULSION [None]
